FAERS Safety Report 6510829-1 (Version None)
Quarter: 2009Q4

REPORT INFORMATION
  Report Type: 
  Country: None (occurrence: None)
  Receive Date: 20091222
  Receipt Date: 20090115
  Transmission Date: 20100525
  Serious: No
  Sender: FDA-Public Use
  Company Number: US-ASTRAZENECA-2009UW01272

PATIENT
  Age: 83 Year
  Sex: Female

DRUGS (3)
  1. CRESTOR [Suspect]
     Indication: HYPERCHOLESTEROLAEMIA
     Dosage: 5 MG
     Route: 048
     Dates: start: 20081101
  2. ASPIRIN [Concomitant]
  3. MULTI-VITAMIN [Concomitant]

REACTIONS (2)
  - MUSCULOSKELETAL DISCOMFORT [None]
  - URINARY TRACT INFECTION [None]
